FAERS Safety Report 10572182 (Version 4)
Quarter: 2015Q3

REPORT INFORMATION
  Report Type: Report from Study
  Country: JP (occurrence: JP)
  Receive Date: 20141108
  Receipt Date: 20150703
  Transmission Date: 20151125
  Serious: Yes (Hospitalization)
  Sender: FDA-Public Use
  Company Number: JP-009507513-1307JPN011617

PATIENT
  Age: 60 Year
  Sex: Male

DRUGS (18)
  1. ZOLINZA [Suspect]
     Active Substance: VORINOSTAT
     Dosage: 100 MG, QD
     Route: 048
     Dates: start: 20130826, end: 20130827
  2. TAKEPRON [Concomitant]
     Active Substance: LANSOPRAZOLE
     Indication: PROPHYLAXIS
     Dosage: 30 MG, QD
     Route: 048
     Dates: end: 20140413
  3. TENELIA [Concomitant]
     Active Substance: CITALOPRAM HYDROBROMIDE
     Indication: DIABETES MELLITUS
     Dosage: 40 MG, QD
     Route: 048
     Dates: end: 20140413
  4. FOLIAMIN [Concomitant]
     Active Substance: FOLIC ACID
     Indication: FOLATE DEFICIENCY
     Dosage: 1 DF, TID
     Route: 048
     Dates: end: 20140413
  5. LIPITOR [Concomitant]
     Active Substance: ATORVASTATIN CALCIUM
     Indication: HYPERLIPIDAEMIA
     Dosage: 5 MG, QD
     Route: 048
     Dates: end: 20140413
  6. BIOFERMIN R [Concomitant]
     Active Substance: BACILLUS SUBTILIS\LACTOBACILLUS ACIDOPHILUS\STREPTOCOCCUS FAECAIS
     Indication: DIARRHOEA
     Dosage: 1 DF, TID
     Route: 048
     Dates: start: 20130904, end: 20140413
  7. ZOLINZA [Suspect]
     Active Substance: VORINOSTAT
     Dosage: 200 MG, QD, 5 DAY OF ORAL INTAKE FOLLOWED BY 2 DAYS OF INTERRUPTION
     Route: 048
     Dates: start: 20130614, end: 20130624
  8. ZOLINZA [Suspect]
     Active Substance: VORINOSTAT
     Dosage: 100 MG, QD
     Route: 048
     Dates: start: 20131115, end: 20140121
  9. LAC-B [Concomitant]
     Active Substance: BIFIDOBACTERIUM SPP.
     Indication: FAECES SOFT
     Dosage: 3 G, TID, FORMULATION FGR
     Route: 048
  10. ZOLINZA [Suspect]
     Active Substance: VORINOSTAT
     Indication: ANAPLASTIC LARGE-CELL LYMPHOMA
     Dosage: 300 MG, QD, 5 DAY OF ORAL INTAKE FOLLOWED BY 2 DAYS OF INTERRUPTION
     Route: 048
     Dates: start: 20130524, end: 20130530
  11. ZOLINZA [Suspect]
     Active Substance: VORINOSTAT
     Dosage: 200 MG, QD, 5 DAY OF ORAL INTAKE FOLLOWED BY 2 DAYS OF INTERRUPTION
     Route: 048
     Dates: start: 20130531, end: 20130613
  12. ZOLINZA [Suspect]
     Active Substance: VORINOSTAT
     Dosage: 100 MG, QD
     Route: 048
     Dates: start: 20130808, end: 20130822
  13. ZOLINZA [Suspect]
     Active Substance: VORINOSTAT
     Dosage: 100 MG, QD, 5 DAY OF ORAL INTAKE FOLLOWED BY 2 DAYS OF INTERRUPTION
     Route: 048
     Dates: start: 20130708, end: 20130807
  14. GEMCITABINE HYDROCHLORIDE. [Suspect]
     Active Substance: GEMCITABINE HYDROCHLORIDE
     Indication: ANAPLASTIC LARGE-CELL LYMPHOMA
     Dosage: DAILY DOSAGE UNKNOWN
     Route: 051
     Dates: start: 20131101, end: 20140120
  15. ALFAROL [Concomitant]
     Active Substance: ALFACALCIDOL
     Indication: LUMBAR VERTEBRAL FRACTURE
     Dosage: 0.5 MICROGRAM, QD
     Route: 048
     Dates: end: 20140413
  16. ZOLINZA [Suspect]
     Active Substance: VORINOSTAT
     Dosage: 200 MG, QD
     Route: 048
     Dates: start: 20130823, end: 20130825
  17. ITRIZOLE [Concomitant]
     Active Substance: ITRACONAZOLE
     Indication: PROPHYLAXIS
     Dosage: 20 ML, QD
     Route: 048
     Dates: end: 20140413
  18. METHYCOBAL [Concomitant]
     Active Substance: METHYLCOBALAMIN
     Indication: NEUROPATHY PERIPHERAL
     Dosage: 500 MICROGRAM, TID
     Route: 048
     Dates: end: 20140413

REACTIONS (9)
  - Dehydration [Recovered/Resolved]
  - Salmonella sepsis [Recovering/Resolving]
  - Gastroenteritis salmonella [Recovering/Resolving]
  - Acute kidney injury [Recovered/Resolved]
  - Platelet count decreased [Not Recovered/Not Resolved]
  - Decreased appetite [Recovering/Resolving]
  - Diarrhoea [Recovering/Resolving]
  - Bone marrow failure [Not Recovered/Not Resolved]
  - Diarrhoea [Recovering/Resolving]

NARRATIVE: CASE EVENT DATE: 20130528
